FAERS Safety Report 8384166-7 (Version None)
Quarter: 2012Q2

REPORT INFORMATION
  Report Type: 
  Country: None (occurrence: None)
  Receive Date: 20120524
  Receipt Date: 20120511
  Transmission Date: 20120825
  Serious: Yes (Other)
  Sender: FDA-Public Use
  Company Number: US-ROCHE-760224

PATIENT
  Sex: Female

DRUGS (7)
  1. KLONOPIN [Concomitant]
  2. EFFEXOR [Concomitant]
  3. SYNTHROID [Concomitant]
  4. BONIVA [Suspect]
     Indication: OSTEOPENIA
     Route: 065
  5. CALCIUM [Concomitant]
  6. DEPAKOTE [Concomitant]
  7. TOPAMAX [Concomitant]

REACTIONS (3)
  - MYALGIA [None]
  - BONE PAIN [None]
  - FEMUR FRACTURE [None]
